FAERS Safety Report 7223032-7 (Version None)
Quarter: 2011Q1

REPORT INFORMATION
  Report Type: 
  Country: None (occurrence: None)
  Receive Date: 20110112
  Receipt Date: 20110106
  Transmission Date: 20110831
  Serious: Yes (Hospitalization, Other)
  Sender: FDA-Public Use
  Company Number: US-RB-017386-10

PATIENT
  Age: 30 Year
  Sex: Male

DRUGS (1)
  1. SUBOXONE [Suspect]
     Indication: DRUG DEPENDENCE
     Dosage: DOSING INFORMATION UNKNOWN
     Route: 060

REACTIONS (6)
  - PANIC DISORDER [None]
  - HEADACHE [None]
  - DRUG DEPENDENCE [None]
  - SUICIDAL IDEATION [None]
  - SUBSTANCE ABUSE [None]
  - GASTRIC ULCER [None]
